FAERS Safety Report 7124008-0 (Version None)
Quarter: 2010Q4

REPORT INFORMATION
  Report Type: 
  Country: None (occurrence: None)
  Receive Date: 20101126
  Receipt Date: 20101122
  Transmission Date: 20110411
  Serious: Yes (Other)
  Sender: FDA-Public Use
  Company Number: US-PFIZER INC-2010155906

PATIENT
  Age: 35 Year

DRUGS (1)
  1. DEPO-PROVERA [Suspect]
     Dosage: UNK
     Dates: end: 20080101

REACTIONS (10)
  - ABDOMINAL PAIN [None]
  - AMENORRHOEA [None]
  - ANXIETY [None]
  - BONE DENSITY DECREASED [None]
  - DEPRESSION [None]
  - INJECTION SITE HAEMORRHAGE [None]
  - OCULAR ICTERUS [None]
  - PIGMENTATION DISORDER [None]
  - POST INFLAMMATORY PIGMENTATION CHANGE [None]
  - TOOTH LOSS [None]
